FAERS Safety Report 13358395 (Version 9)
Quarter: 2018Q1

REPORT INFORMATION
  Report Type: Report from Study
  Country: CO (occurrence: CO)
  Receive Date: 20170322
  Receipt Date: 20180219
  Transmission Date: 20180508
  Serious: Yes (Life-Threatening, Other)
  Sender: FDA-Public Use
  Company Number: PHHY2016CO021745

PATIENT
  Age: 61 Year
  Sex: Female
  Weight: 44 kg

DRUGS (6)
  1. SANDOSTATIN LAR DEPOT [Suspect]
     Active Substance: OCTREOTIDE ACETATE
     Dosage: 30 MG, QMO (ONCE A MONTH)
     Route: 030
     Dates: start: 20120601
  2. LOSARTAN. [Concomitant]
     Active Substance: LOSARTAN
     Indication: PRODUCT USED FOR UNKNOWN INDICATION
     Dosage: 1 DF, UNK
     Route: 065
  3. SANDOSTATIN LAR DEPOT [Suspect]
     Active Substance: OCTREOTIDE ACETATE
     Indication: NEUROENDOCRINE TUMOUR
     Dosage: 30 MG, QMO (ONCE A MONTH)
     Route: 030
     Dates: start: 20170927
  4. SANDOSTATIN LAR DEPOT [Suspect]
     Active Substance: OCTREOTIDE ACETATE
     Indication: RENAL CANCER
     Dosage: 30 MG, QMO (ONCE A MONTH)
     Route: 030
     Dates: start: 20120501
  5. LEVOTHYROXINE. [Concomitant]
     Active Substance: LEVOTHYROXINE
     Indication: HYPOTHYROIDISM
     Dosage: 1 DF, UNK
     Route: 065
  6. HYDROCHLOROTHIAZIDE. [Concomitant]
     Active Substance: HYDROCHLOROTHIAZIDE
     Indication: PRODUCT USED FOR UNKNOWN INDICATION
     Dosage: 1 DF, UNK
     Route: 065

REACTIONS (31)
  - Psychiatric symptom [Unknown]
  - Bile duct stone [Unknown]
  - Malignant neoplasm progression [Unknown]
  - Abdominal pain upper [Unknown]
  - Metastases to pelvis [Unknown]
  - Irritability [Unknown]
  - Metastases to liver [Unknown]
  - Hyperhidrosis [Unknown]
  - Pelvic pain [Unknown]
  - Vomiting [Recovered/Resolved]
  - Inappropriate schedule of drug administration [Unknown]
  - Diarrhoea [Recovering/Resolving]
  - Hepatic lesion [Unknown]
  - Chest pain [Unknown]
  - Weight decreased [Recovering/Resolving]
  - Metastases to ovary [Unknown]
  - Diarrhoea [Recovered/Resolved]
  - Headache [Unknown]
  - Product use in unapproved indication [Unknown]
  - Feeling abnormal [Recovering/Resolving]
  - Tension [Unknown]
  - Body temperature fluctuation [Unknown]
  - Pain in extremity [Unknown]
  - Malaise [Recovering/Resolving]
  - Hepatic pain [Unknown]
  - Cholelithiasis [Unknown]
  - Urine analysis abnormal [Unknown]
  - Blood chromogranin A increased [Unknown]
  - Insomnia [Unknown]
  - Stress [Unknown]
  - Abdominal pain [Unknown]

NARRATIVE: CASE EVENT DATE: 2012
